FAERS Safety Report 16509121 (Version 1)
Quarter: 2019Q3

REPORT INFORMATION
  Report Type: Spontaneous
  Country: FR (occurrence: FR)
  Receive Date: 20190701
  Receipt Date: 20190701
  Transmission Date: 20191004
  Serious: Yes (Hospitalization)
  Sender: FDA-Public Use
  Company Number: FR-MYLANLABS-2019M1059402

PATIENT
  Age: 55 Year
  Sex: Male

DRUGS (2)
  1. PARACETAMOL [Suspect]
     Active Substance: ACETAMINOPHEN
     Indication: PAIN
     Dosage: 4 GRAM
     Route: 048
     Dates: start: 20181208
  2. KETOPROFEN. [Suspect]
     Active Substance: KETOPROFEN
     Indication: RENAL COLIC
     Dosage: 200 MILLIGRAM
     Route: 048
     Dates: start: 20181208, end: 20181210

REACTIONS (1)
  - Liver injury [Not Recovered/Not Resolved]

NARRATIVE: CASE EVENT DATE: 20181210
